FAERS Safety Report 5536520-6 (Version None)
Quarter: 2007Q4

REPORT INFORMATION
  Report Type: 
  Country: None (occurrence: None)
  Receive Date: 20071206
  Receipt Date: 20071010
  Transmission Date: 20080405
  Serious: Yes (Hospitalization)
  Sender: FDA-Public Use
  Company Number: US-AMGEN-STX237869

PATIENT
  Sex: Female
  Weight: 158.9 kg

DRUGS (4)
  1. ENBREL [Suspect]
     Indication: RHEUMATOID ARTHRITIS
     Route: 058
     Dates: start: 20030601, end: 20030801
  2. ENBREL [Suspect]
     Route: 058
     Dates: start: 20030901, end: 20040601
  3. ENBREL [Suspect]
     Dates: start: 20050523, end: 20050523
  4. ULTRACET [Concomitant]

REACTIONS (3)
  - FURUNCLE [None]
  - MYOCARDIAL INFARCTION [None]
  - URINARY TRACT INFECTION [None]
